FAERS Safety Report 20661279 (Version 1)
Quarter: 2022Q2

REPORT INFORMATION
  Report Type: Other
  Country: JP (occurrence: JP)
  Receive Date: 20220401
  Receipt Date: 20220401
  Transmission Date: 20220721
  Serious: Yes (Other)
  Sender: FDA-Public Use
  Company Number: JP-Encube-000003

PATIENT

DRUGS (1)
  1. TESTOSTERONE [Suspect]
     Active Substance: TESTOSTERONE
     Indication: Virilism

REACTIONS (4)
  - Exposure during pregnancy [Unknown]
  - Insomnia [Unknown]
  - Perinatal depression [Unknown]
  - Off label use [Unknown]
